APPROVED DRUG PRODUCT: TESTOSTERONE ENANTHATE
Active Ingredient: TESTOSTERONE ENANTHATE
Strength: 200MG/ML
Dosage Form/Route: INJECTABLE;INJECTION
Application: A040647 | Product #001
Applicant: RISING PHARMA HOLDING INC
Approved: Oct 5, 2009 | RLD: No | RS: No | Type: DISCN